FAERS Safety Report 10184638 (Version 1)
Quarter: 2014Q2

REPORT INFORMATION
  Report Type: Spontaneous
  Country: MX (occurrence: None)
  Receive Date: 20140519
  Receipt Date: 20140519
  Transmission Date: 20141212
  Serious: Yes (Death)
  Sender: FDA-Public Use
  Company Number: VAL_03121_2014

PATIENT
  Age: 49 Year
  Sex: Male

DRUGS (6)
  1. BROMOCRIPTINE [Suspect]
     Indication: ACROMEGALY
     Dosage: (DF), (DF)?
     Dates: start: 1995
  2. SOMATOSTATIN AND ANALOGUES [Suspect]
     Indication: ACROMEGALY
     Dosage: (300 UG, PER DAY SCUBCUTANEOUS)?
     Route: 058
  3. HYDROCORTISONE (UNKNOWN) [Concomitant]
  4. LEVOTHYROXINE (UNKNOWN) [Concomitant]
  5. TESTOSTERONE (UNKNOWN) [Concomitant]
  6. CABERGOLINE (UNKNOWN) [Concomitant]

REACTIONS (13)
  - Joint stiffness [None]
  - Paraesthesia [None]
  - Arthropathy [None]
  - Osteoarthritis [None]
  - Sleep apnoea syndrome [None]
  - Hypopituitarism [None]
  - Sudden death [None]
  - Drug ineffective [None]
  - Product quality issue [None]
  - Therapy cessation [None]
  - Macroglossia [None]
  - Headache [None]
  - Acromegaly [None]
